FAERS Safety Report 6582927-8 (Version None)
Quarter: 2010Q1

REPORT INFORMATION
  Report Type: 
  Country: None (occurrence: None)
  Receive Date: 20100216
  Receipt Date: 20100208
  Transmission Date: 20100710
  Serious: Yes (Death)
  Sender: FDA-Public Use
  Company Number: JP-GENENTECH-297584

PATIENT
  Sex: Male

DRUGS (1)
  1. RITUXAN [Suspect]
     Indication: LYMPHOMA

REACTIONS (1)
  - CEREBRAL HAEMORRHAGE [None]
